FAERS Safety Report 26121207 (Version 1)
Quarter: 2025Q4

REPORT INFORMATION
  Report Type: Spontaneous
  Country: US (occurrence: None)
  Receive Date: 20251202
  Receipt Date: 20251202
  Transmission Date: 20260117
  Serious: Yes (Other)
  Sender: FDA-CTU
  Company Number: None

PATIENT
  Age: 63 Year

DRUGS (1)
  1. HADLIMA [Suspect]
     Active Substance: ADALIMUMAB-BWWD

REACTIONS (5)
  - Headache [None]
  - Nausea [None]
  - Fatigue [None]
  - Rash [None]
  - Fungal infection [None]

NARRATIVE: CASE EVENT DATE: 20251202
